FAERS Safety Report 13546738 (Version 1)
Quarter: 2017Q2

REPORT INFORMATION
  Report Type: Spontaneous
  Country: US (occurrence: US)
  Receive Date: 20170515
  Receipt Date: 20170515
  Transmission Date: 20170830
  Serious: Yes (Other)
  Sender: FDA-Public Use
  Company Number: US-BAYER-2017-089003

PATIENT
  Sex: Male

DRUGS (2)
  1. HELIXATE FS [Suspect]
     Active Substance: ANTIHEMOPHILIC FACTOR, HUMAN RECOMBINANT
     Indication: ANTI FACTOR VIII ANTIBODY POSITIVE
     Dosage: 1400 IU Q 24H X 5 DAYS STARTING 3/25
     Route: 042
     Dates: start: 20120911
  2. HELIXATE FS [Suspect]
     Active Substance: ANTIHEMOPHILIC FACTOR, HUMAN RECOMBINANT
     Indication: ANTI FACTOR VIII ANTIBODY POSITIVE
     Dosage: 1400 IU Q 24H X 5 DAYS STARTING 3/25
     Route: 042
     Dates: start: 20120911

REACTIONS (2)
  - Epistaxis [None]
  - Tonsillectomy [None]
